FAERS Safety Report 7674298-0 (Version None)
Quarter: 2011Q3

REPORT INFORMATION
  Report Type: 
  Country: None (occurrence: None)
  Receive Date: 20110810
  Receipt Date: 20101112
  Transmission Date: 20111222
  Serious: No
  Sender: FDA-Public Use
  Company Number: US-BAUSCH-2010BL006496

PATIENT
  Age: 6 Year
  Sex: Male

DRUGS (1)
  1. CROMOLYN SODIUM [Suspect]
     Indication: NASAL CONGESTION
     Route: 045
     Dates: start: 20101112

REACTIONS (2)
  - CRYING [None]
  - INCORRECT ROUTE OF DRUG ADMINISTRATION [None]
